FAERS Safety Report 10196903 (Version 1)
Quarter: 2014Q2

REPORT INFORMATION
  Report Type: Spontaneous
  Country: GB (occurrence: GB)
  Receive Date: 20140527
  Receipt Date: 20140527
  Transmission Date: 20141212
  Serious: Yes (Life-Threatening)
  Sender: FDA-Public Use
  Company Number: GB-WATSON-2014-10624

PATIENT
  Age: 57 Year
  Sex: Female
  Weight: 80 kg

DRUGS (2)
  1. ATRACURIUM (UNKNOWN) [Suspect]
     Indication: ANAESTHESIA
     Dosage: 30 MG, UNK
     Route: 042
     Dates: start: 20140328, end: 20140328
  2. SUXAMETHONIUM (UNKNOWN) [Suspect]
     Indication: ANAESTHESIA
     Dosage: 100 MG, UNK
     Route: 042
     Dates: start: 20140328, end: 20140328

REACTIONS (1)
  - Anaphylactic reaction [Recovered/Resolved]
